FAERS Safety Report 16025789 (Version 1)
Quarter: 2019Q1

REPORT INFORMATION
  Report Type: Report from Study
  Country: DE (occurrence: DE)
  Receive Date: 20190302
  Receipt Date: 20190302
  Transmission Date: 20190418
  Serious: Yes (Death, Hospitalization, Other)
  Sender: FDA-Public Use
  Company Number: DE-ACCORD-110035

PATIENT
  Age: 65 Year
  Sex: Female
  Weight: 73 kg

DRUGS (7)
  1. PERTUZUMAB. [Suspect]
     Active Substance: PERTUZUMAB
     Indication: HER-2 POSITIVE BREAST CANCER
     Dosage: ALSO RECEIVED AS MAINTENANCE DOSE (420 MG) FROM 16-JUL-2013 TO 29-AUG-2013, INTERVAL 3 WEEKS
     Route: 042
     Dates: start: 20130625, end: 20130625
  2. DOCETAXEL. [Suspect]
     Active Substance: DOCETAXEL
     Indication: BREAST CANCER
     Dosage: DAILY DOSE: 50 MG MILLGRAM(S) EVERY 3 WEEKS
     Route: 042
     Dates: start: 20130625, end: 20130829
  3. ONDANSETRON [Concomitant]
     Active Substance: ONDANSETRON
     Indication: VOMITING
     Dosage: ALSO RECEIVED (8 MG) FROM 17-JUL-2013 TO 18-JUL-2013 AND (8 MG) FROM 07-AUG-2013 TO 08-AUG-2013
     Route: 048
     Dates: start: 20130626, end: 20130627
  4. IBUPROFEN. [Concomitant]
     Active Substance: IBUPROFEN
     Indication: PAIN
     Route: 048
     Dates: start: 20100809
  5. DEXAMETHASONE. [Concomitant]
     Active Substance: DEXAMETHASONE
     Indication: NAUSEA
     Dosage: ALSO RECEIVED (8 MG) FROM 15-JUL-2013 TO 17-JUL-2013, (8 MG) FROM 05-AUG-2013 TO 07-AUG-2013.
     Route: 048
     Dates: start: 20130625, end: 20130627
  6. HERCEPTIN [Suspect]
     Active Substance: TRASTUZUMAB
     Indication: HER-2 POSITIVE BREAST CANCER
     Dosage: ALSO RECEIVED AS MAINTENANCE DOSE (400 MG) FROM 16-JUL-2013 TO 29-AUG-2013, INTERVAL 3 WEEKS
     Route: 042
     Dates: start: 20130625, end: 20130625
  7. METOCLOPRAMIDE. [Concomitant]
     Active Substance: METOCLOPRAMIDE
     Indication: VOMITING
     Route: 048
     Dates: start: 20130625

REACTIONS (5)
  - Diarrhoea [Recovered/Resolved]
  - Death [Fatal]
  - Nasopharyngitis [Recovered/Resolved]
  - Lung infiltration [Recovered/Resolved]
  - Febrile neutropenia [Recovered/Resolved]

NARRATIVE: CASE EVENT DATE: 20130702
